FAERS Safety Report 13278254 (Version 1)
Quarter: 2017Q1

REPORT INFORMATION
  Report Type: Spontaneous
  Country: TR (occurrence: TR)
  Receive Date: 20170228
  Receipt Date: 20170228
  Transmission Date: 20170428
  Serious: Yes (Hospitalization)
  Sender: FDA-Public Use
  Company Number: TR-JNJFOC-20170226221

PATIENT
  Age: 63 Year
  Sex: Female

DRUGS (6)
  1. FEMARA [Concomitant]
     Active Substance: LETROZOLE
     Route: 065
  2. BONVIVA [Concomitant]
     Active Substance: IBANDRONATE SODIUM
     Route: 065
  3. METOPROLOL TARTRATE. [Concomitant]
     Active Substance: METOPROLOL TARTRATE
     Route: 065
  4. HYDROCHLOROTHIAZIDE. [Concomitant]
     Active Substance: HYDROCHLOROTHIAZIDE
     Route: 065
  5. BETASERC [Concomitant]
     Active Substance: BETAHISTINE
     Route: 065
  6. XARELTO [Suspect]
     Active Substance: RIVAROXABAN
     Indication: HIP SURGERY
     Route: 048
     Dates: start: 20170221

REACTIONS (1)
  - Hypertension [Unknown]

NARRATIVE: CASE EVENT DATE: 20170222
